FAERS Safety Report 8176502-1 (Version None)
Quarter: 2012Q1

REPORT INFORMATION
  Report Type: 
  Country: None (occurrence: None)
  Receive Date: 20120301
  Receipt Date: 20120223
  Transmission Date: 20120608
  Serious: Yes (Hospitalization)
  Sender: FDA-Public Use
  Company Number: FR-PFIZER INC-2012052740

PATIENT
  Age: 46 Year
  Sex: Male

DRUGS (4)
  1. BACTRIM [Suspect]
     Dosage: 12 DOSAGE FORMS
     Route: 042
     Dates: start: 20120114, end: 20120115
  2. ROCEPHIN [Suspect]
     Dosage: 2 G
     Route: 042
     Dates: start: 20120114
  3. ROVAMYCINE [Suspect]
     Dosage: 3500000 IU
     Route: 042
     Dates: start: 20120114
  4. PANTOPRAZOLE SODIUM [Suspect]
     Dosage: 40 MG, DAILY
     Route: 042
     Dates: start: 20120114, end: 20120120

REACTIONS (6)
  - INFECTION PARASITIC [None]
  - PROTEINURIA [None]
  - EOSINOPHILIA [None]
  - LUNG DISORDER [None]
  - RENAL FAILURE ACUTE [None]
  - THROMBOCYTOPENIA [None]
